FAERS Safety Report 9477994 (Version 2)
Quarter: 2013Q3

REPORT INFORMATION
  Report Type: Report from Study
  Country: BR (occurrence: BR)
  Receive Date: 20130827
  Receipt Date: 20130827
  Transmission Date: 20140515
  Serious: Yes (Other)
  Sender: FDA-Public Use
  Company Number: PHHY2011BR36866

PATIENT
  Age: 81 Year
  Sex: Female
  Weight: 66 kg

DRUGS (1)
  1. DIOVAN HCT [Suspect]
     Indication: HYPERTENSION
     Dosage: 1.5 DF, (80 MG VALS/ 12,5 MG HYDRO) IN THE MORNING
     Route: 048

REACTIONS (18)
  - Thyroid neoplasm [Recovered/Resolved]
  - Gastritis [Recovered/Resolved]
  - Hiatus hernia [Recovered/Resolved]
  - Oesophagitis [Recovered/Resolved]
  - Neuritis [Recovering/Resolving]
  - Fibromyalgia [Recovering/Resolving]
  - Pain in extremity [Recovering/Resolving]
  - Hypoaesthesia [Recovering/Resolving]
  - Asthenia [Recovering/Resolving]
  - Spinal pain [Unknown]
  - Malaise [Unknown]
  - Depressed mood [Unknown]
  - Sleep disorder [Unknown]
  - Constipation [Unknown]
  - Muscle spasms [Recovering/Resolving]
  - Dizziness [Unknown]
  - Blood pressure increased [Unknown]
  - Wrong technique in drug usage process [Unknown]
